FAERS Safety Report 6663083-4 (Version None)
Quarter: 2010Q2

REPORT INFORMATION
  Report Type: 
  Country: None (occurrence: None)
  Receive Date: 20100401
  Receipt Date: 20100329
  Transmission Date: 20101027
  Serious: Yes (Hospitalization, Other)
  Sender: FDA-Public Use
  Company Number: US-ELI_LILLY_AND_COMPANY-US201003001764

PATIENT
  Sex: Female
  Weight: 94.331 kg

DRUGS (9)
  1. BYETTA [Suspect]
     Indication: TYPE 2 DIABETES MELLITUS
     Dosage: 5 UG, 2/D
     Dates: start: 20071203, end: 20090101
  2. BYETTA [Suspect]
     Dosage: 5 UG, 2/D
     Dates: start: 20100101
  3. BYETTA [Suspect]
     Dosage: 10 UG, 2/D
     Dates: start: 20070905
  4. CRESTOR [Concomitant]
     Route: 048
  5. SYNTHROID [Concomitant]
     Indication: HYPOTHYROIDISM
     Dosage: 0.05 MG, DAILY (1/D)
     Route: 048
  6. ECOTRIN [Concomitant]
     Indication: ATRIAL FLUTTER
     Dosage: 325 MG, DAILY (1/D)
     Route: 048
  7. ACTOS [Concomitant]
     Dates: end: 20090201
  8. PRAVACHOL [Concomitant]
     Indication: HYPERLIPIDAEMIA
     Dosage: 20 MG, UNK
     Route: 048
     Dates: end: 20090601
  9. JANUMET [Concomitant]
     Indication: DIABETES MELLITUS

REACTIONS (18)
  - ATRIAL FIBRILLATION [None]
  - ATRIAL FLUTTER [None]
  - ATRIOVENTRICULAR BLOCK [None]
  - CATHETERISATION CARDIAC [None]
  - CHEST PAIN [None]
  - DRUG INEFFECTIVE [None]
  - DYSPHAGIA [None]
  - DYSPNOEA [None]
  - FLUID RETENTION [None]
  - HEART RATE INCREASED [None]
  - HOSPITALISATION [None]
  - HYPOPHAGIA [None]
  - INTERNATIONAL NORMALISED RATIO INCREASED [None]
  - MALAISE [None]
  - MITRAL VALVE INCOMPETENCE [None]
  - NAUSEA [None]
  - PAIN IN EXTREMITY [None]
  - PERICARDIAL EFFUSION [None]
